FAERS Safety Report 10477713 (Version 1)
Quarter: 2014Q3

REPORT INFORMATION
  Report Type: Spontaneous
  Country: CN (occurrence: None)
  Receive Date: 20140924
  Receipt Date: 20140924
  Transmission Date: 20150326
  Serious: Yes (Hospitalization, Other)
  Sender: FDA-Public Use
  Company Number: 2014/069

PATIENT
  Age: 51 Year
  Sex: Male

DRUGS (4)
  1. OLANZAPINE (NO PREF. NAME) [Suspect]
     Active Substance: OLANZAPINE
     Indication: MEIGE^S SYNDROME
     Dosage: OD + UNK
  2. OLANZAPINE (NO PREF. NAME) [Suspect]
     Active Substance: OLANZAPINE
     Indication: INSOMNIA
     Dosage: OD + UNK
  3. ALPRAZOLAM. [Concomitant]
     Active Substance: ALPRAZOLAM
  4. TRIHEXYPHENIDYL [Concomitant]
     Active Substance: TRIHEXYPHENIDYL

REACTIONS (1)
  - Restless legs syndrome [None]
